FAERS Safety Report 9230545 (Version 2)
Quarter: 2019Q1

REPORT INFORMATION
  Report Type: Spontaneous
  Country: FR (occurrence: FR)
  Receive Date: 20130415
  Receipt Date: 20190220
  Transmission Date: 20190418
  Serious: Yes (Other)
  Sender: FDA-Public Use
  Company Number: FR-SANOFI-AVENTIS-2013SA036950

PATIENT
  Age: 55 Year
  Sex: Male
  Weight: 192 kg

DRUGS (1)
  1. TAXOTERE [Suspect]
     Active Substance: DOCETAXEL
     Indication: METASTATIC BRONCHIAL CARCINOMA
     Dosage: 150 MG,QCY
     Route: 042
     Dates: start: 20130213, end: 20130213

REACTIONS (2)
  - Balance disorder [Not Recovered/Not Resolved]
  - Diplopia [Not Recovered/Not Resolved]

NARRATIVE: CASE EVENT DATE: 20130228
